FAERS Safety Report 9867963 (Version 3)
Quarter: 2014Q2

REPORT INFORMATION
  Report Type: Spontaneous
  Country: US (occurrence: US)
  Receive Date: 20140204
  Receipt Date: 20140616
  Transmission Date: 20141212
  Serious: Yes (Other)
  Sender: FDA-Public Use
  Company Number: US-PFIZER INC-2014029644

PATIENT
  Age: 68 Year
  Sex: Female
  Weight: 77 kg

DRUGS (4)
  1. LIPITOR [Suspect]
     Indication: LOW DENSITY LIPOPROTEIN INCREASED
     Dosage: 10 MG, 1X/DAY, AT NIGHT TIME
     Route: 048
     Dates: start: 19980924, end: 199811
  2. LIPITOR [Suspect]
     Indication: CARDIOVASCULAR EVENT PROPHYLAXIS
     Dosage: 20 MG, 1X/DAY
     Route: 048
     Dates: start: 1998, end: 20011206
  3. LIPITOR [Suspect]
     Dosage: 40 MG, 1X/DAY
     Route: 048
     Dates: start: 20011206, end: 20070416
  4. VYTORIN [Concomitant]
     Indication: HYPERLIPIDAEMIA
     Dosage: UNK, ONE TABLET PER DAY AT NIGHT
     Dates: start: 20070416, end: 20070725

REACTIONS (4)
  - Type 2 diabetes mellitus [Not Recovered/Not Resolved]
  - Glaucoma [Unknown]
  - Paraesthesia [Not Recovered/Not Resolved]
  - Impaired healing [Not Recovered/Not Resolved]
